FAERS Safety Report 13135366 (Version 3)
Quarter: 2017Q4

REPORT INFORMATION
  Report Type: Report from Study
  Country: JP (occurrence: JP)
  Receive Date: 20170120
  Receipt Date: 20171221
  Transmission Date: 20180320
  Serious: Yes (Death, Other)
  Sender: FDA-Public Use
  Company Number: JP-ARIAD PHARMACEUTICALS, INC-2017JP007592

PATIENT
  Age: 45 Year
  Sex: Female
  Weight: 33 kg

DRUGS (8)
  1. ETOPOSIDE. [Concomitant]
     Active Substance: ETOPOSIDE
     Indication: ACUTE LYMPHOCYTIC LEUKAEMIA
     Dosage: UNK
     Route: 065
     Dates: start: 20161031, end: 20161102
  2. ETOPOSIDE. [Concomitant]
     Active Substance: ETOPOSIDE
     Dosage: UNK
     Route: 065
     Dates: start: 20161226, end: 20161228
  3. FLUCONAZOLE. [Concomitant]
     Active Substance: FLUCONAZOLE
     Indication: PROPHYLAXIS
     Dosage: UNK
     Route: 065
     Dates: start: 20170107
  4. MITOXANTRONE [Concomitant]
     Active Substance: MITOXANTRONE HYDROCHLORIDE
     Indication: ACUTE LYMPHOCYTIC LEUKAEMIA
     Dosage: UNK
     Route: 065
     Dates: start: 20161031, end: 20161102
  5. PONATINIB [Suspect]
     Active Substance: PONATINIB
     Indication: ACUTE LYMPHOCYTIC LEUKAEMIA
     Dosage: 15 MG, QD
     Route: 048
     Dates: start: 20170105, end: 20170107
  6. CYLOCIDE [Concomitant]
     Active Substance: CYTARABINE
     Dosage: UNK
     Route: 065
     Dates: start: 20161226, end: 20161230
  7. CYLOCIDE [Concomitant]
     Active Substance: CYTARABINE
     Indication: ACUTE LYMPHOCYTIC LEUKAEMIA
     Dosage: UNK
     Route: 065
     Dates: start: 20161031, end: 20161104
  8. MITOXANTRONE [Concomitant]
     Active Substance: MITOXANTRONE HYDROCHLORIDE
     Dosage: UNK
     Route: 065
     Dates: start: 20161226, end: 20161228

REACTIONS (2)
  - Haemoptysis [Fatal]
  - Acute lymphocytic leukaemia recurrent [Fatal]

NARRATIVE: CASE EVENT DATE: 20170107
